FAERS Safety Report 7671842-4 (Version None)
Quarter: 2011Q3

REPORT INFORMATION
  Report Type: 
  Country: None (occurrence: None)
  Receive Date: 20110809
  Receipt Date: 20110729
  Transmission Date: 20111222
  Serious: Yes (Hospitalization)
  Sender: FDA-Public Use
  Company Number: FR-PFIZER INC-2011174117

PATIENT
  Age: 41 Year
  Sex: Male

DRUGS (7)
  1. GEMTUZUMAB OZOGAMICIN [Suspect]
     Indication: ACUTE LEUKAEMIA
     Dosage: UNK
     Route: 042
     Dates: start: 20080609, end: 20080609
  2. CYTARABINE [Suspect]
     Indication: ACUTE MYELOID LEUKAEMIA
     Dosage: UNK
     Route: 042
     Dates: start: 20080606, end: 20080610
  3. TRAMADOL HCL [Suspect]
     Dosage: UNK
     Dates: start: 20080618, end: 20080618
  4. ACETAMINOPHEN [Suspect]
     Dosage: UNK
     Route: 048
     Dates: start: 20080619, end: 20080619
  5. ACUPAN [Suspect]
     Dosage: UNK
     Dates: start: 20080616, end: 20080619
  6. NOVANTRONE [Suspect]
     Indication: ACUTE MYELOID LEUKAEMIA
     Dosage: UNK
     Route: 042
     Dates: start: 20080606, end: 20080607
  7. ACETAMINOPHEN [Suspect]
     Dosage: UNK
     Dates: start: 20080617, end: 20080619

REACTIONS (1)
  - DEPRESSED LEVEL OF CONSCIOUSNESS [None]
